FAERS Safety Report 10018480 (Version 2)
Quarter: 2014Q1

REPORT INFORMATION
  Report Type: Report from Study
  Country: JP (occurrence: JP)
  Receive Date: 20140318
  Receipt Date: 20140318
  Transmission Date: 20141002
  Serious: Yes (Death, Other)
  Sender: FDA-Public Use
  Company Number: JP-SA-THYM-1004084

PATIENT
  Age: 19 Year
  Sex: Male
  Weight: 66 kg

DRUGS (10)
  1. THYMOGLOBULINE [Suspect]
     Indication: BONE MARROW CONDITIONING REGIMEN
     Route: 065
     Dates: start: 20110620, end: 20110620
  2. HYDROCORTISONE SODIUM SUCCINATE [Concomitant]
     Indication: PROPHYLAXIS
     Dosage: UNK
     Dates: start: 20110621, end: 20110808
  3. PROGRAF [Concomitant]
     Indication: PROPHYLAXIS
     Dosage: UNK
     Dates: start: 20110620, end: 20110805
  4. LENOGRASTIM [Concomitant]
     Indication: ACUTE MYELOID LEUKAEMIA
     Dosage: UNK
     Dates: start: 20110623, end: 20110718
  5. ITRACONAZOLE [Concomitant]
     Indication: PROPHYLAXIS
     Dosage: UNK
     Dates: start: 20110620, end: 20110626
  6. METHYLPREDNISOLONE SODIUM SUCCINATE [Concomitant]
     Indication: PROPHYLAXIS AGAINST GRAFT VERSUS HOST DISEASE
     Dosage: UNK
     Dates: start: 20110623, end: 20110712
  7. PREDNISOLONE [Concomitant]
     Indication: PROPHYLAXIS AGAINST GRAFT VERSUS HOST DISEASE
     Dosage: UNK,
     Dates: start: 20110629, end: 20110807
  8. ACICLOVIR [Concomitant]
     Indication: PROPHYLAXIS
     Dosage: UNK
     Dates: start: 20110627, end: 20110703
  9. BAKTAR [Concomitant]
     Indication: PROPHYLAXIS
     Dosage: UNK
     Dates: start: 20110620, end: 20110703
  10. RECOMODULIN [Concomitant]
     Indication: PROPHYLAXIS
     Dosage: UNK
     Route: 042
     Dates: start: 20110707, end: 20110801

REACTIONS (10)
  - Acute graft versus host disease in liver [Unknown]
  - Acute graft versus host disease in intestine [Unknown]
  - Pulmonary alveolar haemorrhage [Fatal]
  - Thrombotic microangiopathy [Not Recovered/Not Resolved]
  - Staphylococcal sepsis [Recovered/Resolved]
  - Hepatitis viral [Recovered/Resolved]
  - Cellulitis [Not Recovered/Not Resolved]
  - Aspergillus test positive [Not Recovered/Not Resolved]
  - Epistaxis [Not Recovered/Not Resolved]
  - Pyrexia [Not Recovered/Not Resolved]
